FAERS Safety Report 24620507 (Version 1)
Quarter: 2024Q4

REPORT INFORMATION
  Report Type: Report from Study
  Country: DE (occurrence: DE)
  Receive Date: 20241114
  Receipt Date: 20241114
  Transmission Date: 20250114
  Serious: Yes (Hospitalization)
  Sender: ABBVIE
  Company Number: DE-ABBVIE-6001366

PATIENT
  Age: 67 Year
  Sex: Male

DRUGS (1)
  1. FOSCARBIDOPA\FOSLEVODOPA [Suspect]
     Active Substance: FOSCARBIDOPA\FOSLEVODOPA
     Indication: Parkinson^s disease
     Dosage: SD: 0.60 ML; CRN: 0.19 ML/H; CR: 0.23 ML/H; CRH: 0.26 ML/H; ED: 0.10 ML
     Route: 058
     Dates: start: 20240829

REACTIONS (3)
  - Hospitalisation [Unknown]
  - Mobility decreased [Unknown]
  - Tremor [Unknown]

NARRATIVE: CASE EVENT DATE: 20240101
